FAERS Safety Report 5102593-8 (Version None)
Quarter: 2006Q3

REPORT INFORMATION
  Report Type: 
  Country: None (occurrence: None)
  Receive Date: 20060907
  Receipt Date: 20060829
  Transmission Date: 20061208
  Serious: Yes (Other)
  Sender: FDA-Public Use
  Company Number: 2006104914

PATIENT
  Age: 5 Year
  Sex: Female
  Weight: 18.5975 kg

DRUGS (2)
  1. BENADRYL [Suspect]
     Indication: HYPERSENSITIVITY
     Dosage: ALMOST A FULL DISPENSER CUP, ORAL
     Route: 048
     Dates: start: 20060829, end: 20060829
  2. DIMETAPP (BROMPHENIRAMINE MALEATE, PHENYLEPHRINE HYDROCHLORIDE, PHENYL [Concomitant]

REACTIONS (2)
  - ACCIDENTAL DRUG INTAKE BY CHILD [None]
  - ERYTHEMA [None]
